FAERS Safety Report 7482159-5 (Version None)
Quarter: 2011Q2

REPORT INFORMATION
  Report Type: 
  Country: None (occurrence: None)
  Receive Date: 20110516
  Receipt Date: 20110513
  Transmission Date: 20111010
  Serious: Yes (Death)
  Sender: FDA-Public Use
  Company Number: GR-PFIZER INC-2011097706

PATIENT
  Age: 47 Year
  Sex: Male

DRUGS (2)
  1. VARENICLINE TARTRATE [Suspect]
     Indication: SMOKING CESSATION THERAPY
     Dosage: 1 MG, 1X/DAY
     Route: 048
     Dates: start: 20100101
  2. SALOSPIR [Concomitant]
     Route: 048

REACTIONS (2)
  - SUDDEN DEATH [None]
  - MYOCARDIAL INFARCTION [None]
